FAERS Safety Report 11283236 (Version 1)
Quarter: 2015Q3

REPORT INFORMATION
  Report Type: Spontaneous
  Country: US (occurrence: US)
  Receive Date: 20150720
  Receipt Date: 20150720
  Transmission Date: 20151125
  Serious: Yes (Other)
  Sender: FDA-Public Use
  Company Number: US-PFIZER INC-2015236182

PATIENT
  Age: 60 Year
  Sex: Female

DRUGS (2)
  1. OMEPRAZOLE. [Suspect]
     Active Substance: OMEPRAZOLE
     Indication: GASTRITIS
     Dosage: 20 MG, 1X/DAY
     Route: 048
  2. LYRICA [Suspect]
     Active Substance: PREGABALIN
     Indication: FIBROMYALGIA
     Dosage: 50 MG, 3X/DAY
     Route: 048

REACTIONS (7)
  - Pain [Not Recovered/Not Resolved]
  - Suspected counterfeit product [Unknown]
  - Mental impairment [Unknown]
  - Muscle spasms [Not Recovered/Not Resolved]
  - Fluid retention [Unknown]
  - Logorrhoea [Unknown]
  - Drug administration error [Unknown]

NARRATIVE: CASE EVENT DATE: 20150701
